FAERS Safety Report 4352630-3 (Version None)
Quarter: 2004Q2

REPORT INFORMATION
  Report Type: 
  Country: None (occurrence: None)
  Receive Date: 20040504
  Receipt Date: 20040414
  Transmission Date: 20050107
  Serious: Yes (Hospitalization)
  Sender: FDA-Public Use
  Company Number: PHBS2004JP05194

PATIENT
  Age: 52 Year
  Sex: Male

DRUGS (2)
  1. VOLTAREN [Suspect]
     Indication: GOUT
     Dosage: UNK, QD
     Route: 048
  2. COLCHICINE [Suspect]
     Indication: GOUT
     Dosage: UNK, QD
     Route: 048

REACTIONS (17)
  - ABDOMINAL PAIN [None]
  - ARTHRALGIA [None]
  - BLOOD AMYLASE INCREASED [None]
  - BLOOD CREATININE INCREASED [None]
  - BLOOD URIC ACID INCREASED [None]
  - C-REACTIVE PROTEIN INCREASED [None]
  - ERYTHEMA [None]
  - GOUTY ARTHRITIS [None]
  - GOUTY TOPHUS [None]
  - JOINT SWELLING [None]
  - PANCREATITIS ACUTE [None]
  - PYREXIA [None]
  - REBOUND EFFECT [None]
  - RENAL FAILURE [None]
  - SYNOVIAL FLUID CRYSTAL PRESENT [None]
  - VOMITING [None]
  - WHITE BLOOD CELL COUNT INCREASED [None]
